FAERS Safety Report 9550274 (Version 1)
Quarter: 2013Q3

REPORT INFORMATION
  Report Type: Spontaneous
  Country: US (occurrence: US)
  Receive Date: 20130924
  Receipt Date: 20130924
  Transmission Date: 20140515
  Serious: No
  Sender: FDA-Public Use
  Company Number: US-SANOFI-AVENTIS-2013SA069762

PATIENT
  Sex: Female

DRUGS (4)
  1. AUBAGIO [Suspect]
     Indication: MULTIPLE SCLEROSIS
  2. TIZANIDINE [Concomitant]
  3. AMANTADINE [Concomitant]
  4. GABAPENTIN [Concomitant]

REACTIONS (4)
  - Speech disorder [Unknown]
  - Chest pain [Unknown]
  - Hyperhidrosis [Unknown]
  - Palpitations [Unknown]
